FAERS Safety Report 22232096 (Version 1)
Quarter: 2023Q2

REPORT INFORMATION
  Report Type: Report from Study
  Country: US (occurrence: US)
  Receive Date: 20230420
  Receipt Date: 20230420
  Transmission Date: 20230721
  Serious: Yes (Other)
  Sender: FDA-Public Use
  Company Number: US-PTx-2022000097

PATIENT
  Age: 61 Year
  Sex: Female
  Weight: 63.7 kg

DRUGS (2)
  1. SARGRAMOSTIM [Suspect]
     Active Substance: SARGRAMOSTIM
     Indication: Neutropenia
     Dosage: 250 MCG/M2, SC
     Route: 058
     Dates: start: 20220131, end: 20220201
  2. LEVOTHYROXINE [Concomitant]
     Active Substance: LEVOTHYROXINE
     Indication: Product used for unknown indication
     Dosage: ONGOING
     Dates: start: 20211019

REACTIONS (1)
  - Febrile neutropenia [Recovered/Resolved]

NARRATIVE: CASE EVENT DATE: 20220131
